FAERS Safety Report 7635187-0 (Version None)
Quarter: 2011Q3

REPORT INFORMATION
  Report Type: 
  Country: None (occurrence: None)
  Receive Date: 20110726
  Receipt Date: 20110720
  Transmission Date: 20111222
  Serious: Yes (Other)
  Sender: FDA-Public Use
  Company Number: US-BRISTOL-MYERS SQUIBB COMPANY-15778418

PATIENT
  Age: 56 Year
  Sex: Female

DRUGS (1)
  1. IXEMPRA KIT [Suspect]
     Indication: BREAST CANCER
     Route: 042
     Dates: start: 20110101

REACTIONS (4)
  - NEOPLASM MALIGNANT [None]
  - FEBRILE NEUTROPENIA [None]
  - BONE MARROW FAILURE [None]
  - HAEMORRHAGE [None]
